FAERS Safety Report 20925887 (Version 1)
Quarter: 2022Q2

REPORT INFORMATION
  Report Type: Spontaneous
  Country: CA (occurrence: CA)
  Receive Date: 20220607
  Receipt Date: 20220607
  Transmission Date: 20220721
  Serious: Yes (Hospitalization)
  Sender: FDA-Public Use
  Company Number: CA-TEVA-2022-CA-2042662

PATIENT
  Age: 82 Year
  Sex: Female

DRUGS (2)
  1. CARBOPLATIN [Suspect]
     Active Substance: CARBOPLATIN
     Route: 065
  2. PACLITAXEL [Suspect]
     Active Substance: PACLITAXEL
     Route: 065

REACTIONS (2)
  - Acute kidney injury [Unknown]
  - Vomiting [Unknown]
